FAERS Safety Report 5189042-9 (Version None)
Quarter: 2006Q4

REPORT INFORMATION
  Report Type: 
  Country: None (occurrence: None)
  Receive Date: 20061215
  Receipt Date: 20061201
  Transmission Date: 20070319
  Serious: Yes (Life-Threatening)
  Sender: FDA-Public Use
  Company Number: 2006BH000774

PATIENT
  Age: 43 Year
  Sex: Male

DRUGS (4)
  1. FLUCONAZOLE IN SODIUM CHLORIDE 0.9% [Suspect]
     Indication: PYREXIA
  2. METHADONE HCL [Suspect]
     Indication: DRUG DEPENDENCE
  3. CEFTRIAXONE [Concomitant]
  4. ANTIRETROVIRAL DRUG [Concomitant]

REACTIONS (23)
  - BRADYARRHYTHMIA [None]
  - DIZZINESS [None]
  - DRUG LEVEL INCREASED [None]
  - DRUG TOXICITY [None]
  - ELECTROCARDIOGRAM PR PROLONGATION [None]
  - ELECTROCARDIOGRAM QT CORRECTED INTERVAL PROLONGED [None]
  - ELECTROLYTE IMBALANCE [None]
  - HAEMODYNAMIC INSTABILITY [None]
  - HYPERCREATININAEMIA [None]
  - HYPERURICAEMIA [None]
  - HYPOALBUMINAEMIA [None]
  - HYPOCALCAEMIA [None]
  - HYPOCHOLESTEROLAEMIA [None]
  - HYPOGLYCAEMIA [None]
  - HYPOMAGNESAEMIA [None]
  - PRESYNCOPE [None]
  - PYREXIA [None]
  - SINUS BRADYCARDIA [None]
  - SYNCOPE [None]
  - TORSADE DE POINTES [None]
  - VENTRICULAR ARRHYTHMIA [None]
  - VENTRICULAR EXTRASYSTOLES [None]
  - VERTIGO [None]
